FAERS Safety Report 11544563 (Version 1)
Quarter: 2015Q3

REPORT INFORMATION
  Report Type: Report from Study
  Country: CA (occurrence: CA)
  Receive Date: 20150924
  Receipt Date: 20150924
  Transmission Date: 20151125
  Serious: Yes (Other)
  Sender: FDA-Public Use
  Company Number: PHHY2015CA016789

PATIENT
  Age: 55 Year
  Sex: Female

DRUGS (1)
  1. ILARIS [Suspect]
     Active Substance: CANAKINUMAB
     Indication: STILL^S DISEASE ADULT ONSET
     Dosage: 150 MG, Q 8 WEEKS
     Route: 058
     Dates: start: 20121204

REACTIONS (14)
  - Skin warm [Recovering/Resolving]
  - Infection [Unknown]
  - Macule [Unknown]
  - Arthralgia [Unknown]
  - Chills [Unknown]
  - Tremor [Recovered/Resolved]
  - Thrombosis [Unknown]
  - Erythema [Unknown]
  - Nasopharyngitis [Unknown]
  - Back pain [Unknown]
  - Pain [Unknown]
  - Pain of skin [Unknown]
  - Rash [Unknown]
  - Pruritus [Unknown]

NARRATIVE: CASE EVENT DATE: 2015
